FAERS Safety Report 6102864-2 (Version None)
Quarter: 2009Q1

REPORT INFORMATION
  Report Type: 
  Country: None (occurrence: None)
  Receive Date: 20090304
  Receipt Date: 20090217
  Transmission Date: 20090719
  Serious: Yes (Other)
  Sender: FDA-Public Use
  Company Number: US-PFIZER INC-2008007185

PATIENT
  Sex: Male

DRUGS (6)
  1. CHANTIX [Suspect]
     Indication: SMOKING CESSATION THERAPY
     Dosage: UNK
     Dates: start: 20071221, end: 20080108
  2. LEXAPRO [Interacting]
     Indication: DEPRESSION
     Dosage: 10 MG, 1X/DAY
  3. LEXAPRO [Interacting]
     Indication: ANXIETY
  4. ALTACE [Concomitant]
     Indication: BLOOD PRESSURE
  5. TRIAMTERENE AND HYDROCHLOROTHIAZIDE [Concomitant]
  6. ACETYLSALICYLIC ACID [Concomitant]

REACTIONS (11)
  - ABNORMAL DREAMS [None]
  - ACTIVITIES OF DAILY LIVING IMPAIRED [None]
  - AGITATION [None]
  - DRUG INEFFECTIVE [None]
  - DRUG INTERACTION [None]
  - MALAISE [None]
  - MENTAL DISORDER [None]
  - NAUSEA [None]
  - PERSONALITY CHANGE [None]
  - SUICIDAL BEHAVIOUR [None]
  - SUICIDAL IDEATION [None]
